FAERS Safety Report 20520623 (Version 1)
Quarter: 2022Q1

REPORT INFORMATION
  Report Type: Spontaneous
  Country: FR (occurrence: FR)
  Receive Date: 20220225
  Receipt Date: 20220225
  Transmission Date: 20220423
  Serious: Yes (Hospitalization)
  Sender: FDA-Public Use
  Company Number: None

PATIENT
  Age: 27 Year
  Sex: Female
  Weight: 57 kg

DRUGS (4)
  1. FLUOXETINE HYDROCHLORIDE [Suspect]
     Active Substance: FLUOXETINE HYDROCHLORIDE
     Indication: Intentional overdose
     Dosage: CP 20 MG
     Route: 048
     Dates: start: 20220123, end: 20220123
  2. LAMICTAL [Suspect]
     Active Substance: LAMOTRIGINE
     Indication: Intentional overdose
     Dosage: 70 DOSAGE FORM, SINGLE
     Route: 048
     Dates: start: 20220123, end: 20220123
  3. LAMICTAL [Suspect]
     Active Substance: LAMOTRIGINE
     Indication: Intentional overdose
     Dosage: 10 DOSAGE FORM, SINGLE
     Route: 048
     Dates: start: 20220123, end: 20220123
  4. LOXAPINE SUCCINATE [Suspect]
     Active Substance: LOXAPINE SUCCINATE
     Indication: Intentional overdose
     Dosage: 50 DOSAGE FORM, SINGLE
     Route: 048
     Dates: start: 20220123, end: 20220123

REACTIONS (3)
  - Poisoning deliberate [Recovered/Resolved]
  - Altered state of consciousness [Recovered/Resolved]
  - Intentional overdose [Recovered/Resolved]

NARRATIVE: CASE EVENT DATE: 20220123
